FAERS Safety Report 8029214-9 (Version None)
Quarter: 2012Q1

REPORT INFORMATION
  Report Type: 
  Country: None (occurrence: None)
  Receive Date: 20120106
  Receipt Date: 20120104
  Transmission Date: 20120608
  Serious: Yes (Other)
  Sender: FDA-Public Use
  Company Number: PHHY2011US37949

PATIENT
  Sex: Female
  Weight: 115.65 kg

DRUGS (5)
  1. DIOVAN HCT [Concomitant]
     Indication: HYPERTENSION
     Dosage: UNK UKN, UNK
  2. VOLTAREN [Concomitant]
     Indication: PAIN
     Dosage: 75 MG, UNK
     Dates: start: 20090717
  3. GILENYA [Suspect]
     Indication: MULTIPLE SCLEROSIS
     Dosage: 0.5 MG, QD
     Route: 048
     Dates: start: 20110304, end: 20110330
  4. GABAPENTIN [Concomitant]
     Indication: PAIN
     Dosage: 100 MG, UNK
     Dates: start: 20090717
  5. LISINOPRIL [Concomitant]
     Indication: HYPERTENSION
     Dosage: 10 MG, UNK

REACTIONS (4)
  - TREMOR [None]
  - SENSATION OF FOREIGN BODY [None]
  - AGITATION [None]
  - NAUSEA [None]
